FAERS Safety Report 24617907 (Version 2)
Quarter: 2025Q3

REPORT INFORMATION
  Report Type: Report from Study
  Country: US (occurrence: US)
  Receive Date: 20241114
  Receipt Date: 20250803
  Transmission Date: 20251021
  Serious: Yes (Other)
  Sender: ALEXION PHARMACEUTICALS
  Company Number: US-AstraZeneca-CH-00742658A

PATIENT
  Sex: Female

DRUGS (6)
  1. OLAPARIB [Suspect]
     Active Substance: OLAPARIB
     Indication: Ovarian cancer
  2. ELIQUIS [Concomitant]
     Active Substance: APIXABAN
  3. METOPROLOL [Concomitant]
     Active Substance: METOPROLOL
  4. SODIUM BICARBONATE [Concomitant]
     Active Substance: SODIUM BICARBONATE
  5. LISINOPRIL [Concomitant]
     Active Substance: LISINOPRIL
  6. VITAMIN D3 [Concomitant]
     Active Substance: CHOLECALCIFEROL

REACTIONS (3)
  - Cataract [Recovering/Resolving]
  - Nausea [Recovering/Resolving]
  - Fatigue [Recovering/Resolving]
